FAERS Safety Report 12416675 (Version 1)
Quarter: 2016Q2

REPORT INFORMATION
  Report Type: Spontaneous
  Country: CN (occurrence: CN)
  Receive Date: 20160530
  Receipt Date: 20160530
  Transmission Date: 20160815
  Serious: Yes (Other)
  Sender: FDA-Public Use
  Company Number: CN-JNJFOC-20150914295

PATIENT

DRUGS (1)
  1. RISPERIDONE. [Suspect]
     Active Substance: RISPERIDONE
     Indication: SCHIZOPHRENIA
     Route: 048

REACTIONS (16)
  - Insomnia [Unknown]
  - Extrapyramidal disorder [Unknown]
  - Electrocardiogram QT prolonged [Unknown]
  - Galactorrhoea [Unknown]
  - Electrocardiogram PR shortened [Unknown]
  - Pyrexia [Unknown]
  - Weight increased [Unknown]
  - Urinary retention [Unknown]
  - Liver function test abnormal [Unknown]
  - Nasopharyngitis [Unknown]
  - Electrocardiogram abnormal [Unknown]
  - Palpitations [Unknown]
  - Constipation [Unknown]
  - Drug ineffective [Unknown]
  - Blood prolactin increased [Unknown]
  - Agitation [Unknown]
